FAERS Safety Report 15135370 (Version 1)
Quarter: 2018Q3

REPORT INFORMATION
  Report Type: Spontaneous
  Country: DK (occurrence: DK)
  Receive Date: 20180712
  Receipt Date: 20180712
  Transmission Date: 20181010
  Serious: Yes (Other)
  Sender: FDA-Public Use
  Company Number: DK-TEVA-2018-DK-924035

PATIENT
  Age: 2 Year
  Sex: Male

DRUGS (3)
  1. DOXORUBICIN [Suspect]
     Active Substance: DOXORUBICIN
     Indication: NEPHROBLASTOMA
     Route: 065
     Dates: start: 2010, end: 201101
  2. ONCOVIN [Suspect]
     Active Substance: VINCRISTINE SULFATE
     Indication: NEPHROBLASTOMA
     Route: 042
     Dates: start: 2010, end: 201101
  3. COSMEGEN [Suspect]
     Active Substance: DACTINOMYCIN
     Indication: NEPHROBLASTOMA
     Route: 065
     Dates: start: 2010, end: 201101

REACTIONS (12)
  - Loss of personal independence in daily activities [Unknown]
  - Social anxiety disorder [Unknown]
  - Cognitive disorder [Unknown]
  - Memory impairment [Unknown]
  - Pyrexia [Unknown]
  - Headache [Unknown]
  - Fatigue [Unknown]
  - Flank pain [Unknown]
  - Dyspraxia [Unknown]
  - Pain [Unknown]
  - Speech disorder developmental [Unknown]
  - Brain injury [Unknown]

NARRATIVE: CASE EVENT DATE: 201011
